FAERS Safety Report 9043396 (Version 1)
Quarter: 2013Q1

REPORT INFORMATION
  Report Type: Report from Study
  Country: US (occurrence: US)
  Receive Date: 20130129
  Receipt Date: 20130129
  Transmission Date: 20140127
  Serious: No
  Sender: FDA-Public Use
  Company Number: US-ABBOTT-12P-163-0912766-00

PATIENT
  Age: 42 Year
  Sex: Male

DRUGS (19)
  1. HUMIRA 40 MG/0.8 ML PEN [Suspect]
     Indication: RHEUMATOID ARTHRITIS
  2. FOLIC ACID [Concomitant]
     Indication: RHEUMATOID ARTHRITIS
     Dosage: 1 MG DAILY
  3. FOLIC ACID [Concomitant]
     Indication: CARDIAC DISORDER
  4. CARVEDILOL [Concomitant]
     Indication: RHEUMATOID ARTHRITIS
  5. CARVEDILOL [Concomitant]
     Indication: CARDIAC DISORDER
  6. CRESTOR [Concomitant]
     Indication: RHEUMATOID ARTHRITIS
  7. CRESTOR [Concomitant]
     Indication: CARDIAC DISORDER
  8. ENALAPRIL [Concomitant]
     Indication: RHEUMATOID ARTHRITIS
  9. ENALAPRIL [Concomitant]
     Indication: CARDIAC DISORDER
  10. METHOTREXATE [Concomitant]
     Indication: RHEUMATOID ARTHRITIS
     Dosage: 4 PILLS PER WEEK
  11. METHOTREXATE [Concomitant]
     Indication: CARDIAC DISORDER
  12. DIGOXIN [Concomitant]
     Indication: RHEUMATOID ARTHRITIS
     Dosage: 0.25 MG DAILY
  13. DIGOXIN [Concomitant]
     Indication: CARDIAC DISORDER
  14. FUROSEMIDE [Concomitant]
     Indication: RHEUMATOID ARTHRITIS
     Dosage: 20 MG DAILY
  15. FUROSEMIDE [Concomitant]
     Indication: CARDIAC DISORDER
  16. SPIRONOLACTONE [Concomitant]
     Indication: RHEUMATOID ARTHRITIS
     Dosage: 25 MG DAILY
  17. SPIRONOLACTONE [Concomitant]
     Indication: CARDIAC DISORDER
  18. IRON [Concomitant]
     Indication: RHEUMATOID ARTHRITIS
     Dosage: DAILY
  19. IRON [Concomitant]
     Indication: CARDIAC DISORDER

REACTIONS (2)
  - Injection site pain [Recovered/Resolved]
  - Injection site pain [Recovered/Resolved]
